FAERS Safety Report 6248738-8 (Version None)
Quarter: 2009Q2

REPORT INFORMATION
  Report Type: 
  Country: None (occurrence: None)
  Receive Date: 20090629
  Receipt Date: 20090615
  Transmission Date: 20091009
  Serious: Yes (Hospitalization)
  Sender: FDA-Public Use
  Company Number: PHHY2009DE25604

PATIENT
  Sex: Male

DRUGS (11)
  1. LEPONEX [Suspect]
     Indication: SCHIZOPHRENIA
     Dosage: 25 MG/DAILY
     Route: 048
     Dates: start: 20081202, end: 20081204
  2. DIAZEPAM [Suspect]
     Dosage: 20 MG/DAY
     Route: 042
     Dates: start: 20081201
  3. DIAZEPAM [Suspect]
     Dosage: 40 MG/DAY
     Route: 042
     Dates: start: 20081203
  4. DIAZEPAM [Suspect]
     Dosage: 10 MG/DAY
     Route: 042
     Dates: start: 20081204
  5. DIAZEPAM [Suspect]
     Dosage: 40 MG/DAY
     Route: 042
     Dates: start: 20081205, end: 20090127
  6. HEPARIN [Suspect]
     Dosage: 5000 IU, UNK
     Route: 058
     Dates: start: 20081203
  7. HALDOL [Suspect]
     Dosage: 10 MG/DAY
     Route: 042
     Dates: start: 20081201
  8. HALDOL [Suspect]
     Dosage: 30 MG/DAY
     Route: 042
     Dates: start: 20081203
  9. HALDOL [Suspect]
     Dosage: 30 MG/DAY
     Route: 042
     Dates: start: 20081204
  10. HALDOL [Suspect]
     Dosage: 30 MG/DAYUNK
     Route: 042
     Dates: start: 20081205, end: 20081222
  11. CIATYL-Z ACUPHASE [Suspect]
     Dosage: 200 MG/DAY
     Route: 030
     Dates: start: 20081201

REACTIONS (2)
  - ELECTROCARDIOGRAM QT PROLONGED [None]
  - ELECTROCARDIOGRAM T WAVE ABNORMAL [None]
